FAERS Safety Report 16908702 (Version 2)
Quarter: 2020Q1

REPORT INFORMATION
  Report Type: Spontaneous
  Country: US (occurrence: US)
  Receive Date: 20191011
  Receipt Date: 20200113
  Transmission Date: 20200409
  Serious: No
  Sender: FDA-Public Use
  Company Number: US-STEMLINE THERAPEUTICS, INC.-2019ST000054

PATIENT
  Age: 42 Year
  Sex: Male

DRUGS (4)
  1. ELZONRIS [Suspect]
     Active Substance: TAGRAXOFUSP-ERZS
     Dosage: CYCLE 2
     Route: 042
     Dates: start: 20190722, end: 20190726
  2. ELZONRIS [Suspect]
     Active Substance: TAGRAXOFUSP-ERZS
     Indication: BLASTIC PLASMACYTOID DENDRITIC CELL NEOPLASIA
     Dosage: CYCLE 1
     Route: 042
     Dates: start: 20190628, end: 20190702
  3. ELZONRIS [Suspect]
     Active Substance: TAGRAXOFUSP-ERZS
     Dosage: CYCLE 4
     Route: 042
     Dates: start: 20190902, end: 20190906
  4. ELZONRIS [Suspect]
     Active Substance: TAGRAXOFUSP-ERZS
     Dosage: CYCLE 3
     Route: 042
     Dates: start: 20190812, end: 20190816

REACTIONS (4)
  - Hepatic enzyme increased [Recovered/Resolved]
  - Dyspepsia [Recovered/Resolved]
  - Constipation [Recovered/Resolved]
  - Fatigue [Recovered/Resolved]

NARRATIVE: CASE EVENT DATE: 20190702
